FAERS Safety Report 20597844 (Version 1)
Quarter: 2022Q1

REPORT INFORMATION
  Report Type: Spontaneous
  Country: DK (occurrence: DK)
  Receive Date: 20220315
  Receipt Date: 20220315
  Transmission Date: 20220423
  Serious: Yes (Hospitalization)
  Sender: FDA-Public Use
  Company Number: None

PATIENT
  Age: 66 Year
  Sex: Male

DRUGS (2)
  1. RIVAROXABAN [Suspect]
     Active Substance: RIVAROXABAN
     Indication: Atrial fibrillation
     Dosage: 15 MG, QD
     Route: 048
     Dates: start: 20210210, end: 20220214
  2. ENALAPRIL [Concomitant]
     Active Substance: ENALAPRIL
     Indication: Hypertension
     Dosage: UNK
     Dates: start: 20190716

REACTIONS (9)
  - Diplopia [Unknown]
  - Vomiting [Recovered/Resolved]
  - Nausea [Unknown]
  - Hemiparesis [Not Recovered/Not Resolved]
  - Hemiparesis [Not Recovered/Not Resolved]
  - Headache [Unknown]
  - Thalamus haemorrhage [Not Recovered/Not Resolved]
  - Dysarthria [Recovering/Resolving]
  - Facial paresis [Not Recovered/Not Resolved]

NARRATIVE: CASE EVENT DATE: 20220201
